FAERS Safety Report 25936858 (Version 1)
Quarter: 2025Q4

REPORT INFORMATION
  Report Type: Spontaneous
  Country: EU (occurrence: EU)
  Receive Date: 20251017
  Receipt Date: 20251017
  Transmission Date: 20260118
  Serious: Yes (Death, Other)
  Sender: AMGEN
  Company Number: EU-AMGEN-ESPSP2025204406

PATIENT

DRUGS (1)
  1. PROLIA [Suspect]
     Active Substance: DENOSUMAB
     Indication: Product used for unknown indication
     Dosage: UNK
     Route: 065

REACTIONS (12)
  - Death [Fatal]
  - Osteoporotic fracture [Unknown]
  - Pathological fracture [Unknown]
  - Traumatic fracture [Unknown]
  - Hip fracture [Unknown]
  - Pelvic fracture [Unknown]
  - Spinal fracture [Unknown]
  - Osteonecrosis of jaw [Unknown]
  - Plasma cell myeloma [Unknown]
  - Humerus fracture [Unknown]
  - Forearm fracture [Unknown]
  - Tongue neoplasm [Unknown]
